FAERS Safety Report 6863177-4 (Version None)
Quarter: 2010Q3

REPORT INFORMATION
  Report Type: 
  Country: None (occurrence: None)
  Receive Date: 20100721
  Receipt Date: 20100720
  Transmission Date: 20110219
  Serious: Yes (Hospitalization, Other)
  Sender: FDA-Public Use
  Company Number: US-BRISTOL-MYERS SQUIBB COMPANY-15200108

PATIENT
  Age: 69 Year
  Sex: Male
  Weight: 136 kg

DRUGS (3)
  1. ERBITUX [Suspect]
     Dosage: STARTED DOSE A MONTH OR SO AGO
  2. NEXIUM [Concomitant]
  3. BLOOD PRESSURE PILL [Concomitant]

REACTIONS (4)
  - DEHYDRATION [None]
  - DIARRHOEA [None]
  - RASH [None]
  - SYNCOPE [None]
